FAERS Safety Report 18856659 (Version 5)
Quarter: 2025Q2

REPORT INFORMATION
  Report Type: Report from Study
  Country: US (occurrence: US)
  Receive Date: 20210207
  Receipt Date: 20250623
  Transmission Date: 20250717
  Serious: Yes (Other)
  Sender: TAKEDA
  Company Number: US-BAXALTA-2016BLT006089AA

PATIENT
  Sex: Female

DRUGS (3)
  1. HUMAN IMMUNOGLOBULIN G [Suspect]
     Active Substance: HUMAN IMMUNOGLOBULIN G
     Indication: IgG deficiency
  2. HUMAN IMMUNOGLOBULIN G [Suspect]
     Active Substance: HUMAN IMMUNOGLOBULIN G
     Indication: Primary immunodeficiency syndrome
  3. HUMAN IMMUNOGLOBULIN G [Suspect]
     Active Substance: HUMAN IMMUNOGLOBULIN G
     Indication: Immunodeficiency common variable

REACTIONS (12)
  - Sepsis [Unknown]
  - Systemic lupus erythematosus [Unknown]
  - Loss of consciousness [Unknown]
  - Device related infection [Unknown]
  - Arrhythmia [Unknown]
  - Infusion related reaction [Unknown]
  - Disorientation [Unknown]
  - Somnolence [Unknown]
  - Influenza like illness [Unknown]
  - Dyspnoea [Unknown]
  - Dizziness [Unknown]
  - Inappropriate schedule of product administration [Unknown]

NARRATIVE: CASE EVENT DATE: 20150101
